FAERS Safety Report 21082803 (Version 3)
Quarter: 2024Q4

REPORT INFORMATION
  Report Type: Spontaneous
  Country: US (occurrence: US)
  Receive Date: 20220714
  Receipt Date: 20241022
  Transmission Date: 20250114
  Serious: Yes (Other)
  Sender: JOHNSON AND JOHNSON
  Company Number: US-JNJFOC-20220718275

PATIENT
  Age: 60 Year
  Sex: Female

DRUGS (1)
  1. ELMIRON [Suspect]
     Active Substance: PENTOSAN POLYSULFATE SODIUM
     Indication: Cystitis interstitial
     Route: 048
     Dates: start: 1997, end: 2003

REACTIONS (4)
  - Dry age-related macular degeneration [Unknown]
  - Liver injury [Unknown]
  - Spleen disorder [Unknown]
  - Maculopathy [Unknown]

NARRATIVE: CASE EVENT DATE: 20170106
